FAERS Safety Report 4641002-X (Version None)
Quarter: 2005Q2

REPORT INFORMATION
  Report Type: 
  Country: None (occurrence: None)
  Receive Date: 20050419
  Receipt Date: 20050419
  Transmission Date: 20051028
  Serious: Yes (Other)
  Sender: FDA-Public Use
  Company Number: None

PATIENT
  Age: 68 Year
  Sex: Male
  Weight: 75.7507 kg

DRUGS (2)
  1. VANCOMYCIN [Suspect]
     Indication: PROPHYLAXIS
     Dosage: 1 GRAM IV
     Route: 042
  2. VANCOMYCIN [Suspect]
     Indication: SURGERY
     Dosage: 1 GRAM IV
     Route: 042

REACTIONS (1)
  - DRUG HYPERSENSITIVITY [None]
